FAERS Safety Report 16861851 (Version 1)
Quarter: 2019Q4

REPORT INFORMATION
  Report Type: Spontaneous
  Country: US (occurrence: US)
  Receive Date: 20190927
  Receipt Date: 20190927
  Transmission Date: 20200122
  Serious: Yes (Other)
  Sender: FDA-Public Use
  Company Number: None

PATIENT
  Age: 12 Year
  Sex: Female
  Weight: 43.2 kg

DRUGS (3)
  1. MIRTAZAPINE 7.5MG [Concomitant]
     Active Substance: MIRTAZAPINE
  2. BLISTEX FRUIT SMOOTHIES [Suspect]
     Active Substance: DIMETHICONE\OCTINOXATE\OCTISALATE
     Indication: CHAPPED LIPS
     Route: 061
     Dates: end: 20190925
  3. MULTIVITAMIN [Concomitant]
     Active Substance: VITAMINS

REACTIONS (3)
  - Hypersensitivity [None]
  - Lip swelling [None]
  - Lip erythema [None]

NARRATIVE: CASE EVENT DATE: 20190926
